FAERS Safety Report 16894927 (Version 1)
Quarter: 2019Q4

REPORT INFORMATION
  Report Type: Spontaneous
  Country: US (occurrence: US)
  Receive Date: 20191008
  Receipt Date: 20191008
  Transmission Date: 20200122
  Serious: No
  Sender: FDA-Public Use
  Company Number: US-INDIVIOR US-INDV-115000-2018

PATIENT
  Age: 56 Year
  Sex: Female

DRUGS (3)
  1. SUBOXONE [Suspect]
     Active Substance: BUPRENORPHINE HYDROCHLORIDE\NALOXONE HYDROCHLORIDE
     Indication: DRUG DEPENDENCE
     Dosage: UNK
     Route: 060
     Dates: start: 2018, end: 2018
  2. SUBOXONE [Suspect]
     Active Substance: BUPRENORPHINE HYDROCHLORIDE\NALOXONE HYDROCHLORIDE
     Dosage: 8MG FILM CUT INTO HALF, UNK
     Route: 060
     Dates: start: 2018
  3. OXYGEN. [Concomitant]
     Active Substance: OXYGEN
     Indication: CHRONIC OBSTRUCTIVE PULMONARY DISEASE
     Dosage: UNK
     Route: 055

REACTIONS (8)
  - Dyskinesia [Not Recovered/Not Resolved]
  - Wrong technique in product usage process [Unknown]
  - Muscle twitching [Not Recovered/Not Resolved]
  - Neck pain [Not Recovered/Not Resolved]
  - Mental disorder [Not Recovered/Not Resolved]
  - Drooling [Not Recovered/Not Resolved]
  - Abdominal discomfort [Not Recovered/Not Resolved]
  - Intentional underdose [Unknown]

NARRATIVE: CASE EVENT DATE: 2018
